FAERS Safety Report 5988768-4 (Version None)
Quarter: 2008Q4

REPORT INFORMATION
  Report Type: 
  Country: None (occurrence: None)
  Receive Date: 20081210
  Receipt Date: 20081205
  Transmission Date: 20090506
  Serious: Yes (Death, Other)
  Sender: FDA-Public Use
  Company Number: PHHY2008JP24130

PATIENT
  Sex: Male

DRUGS (13)
  1. EXJADE [Suspect]
     Indication: IRON OVERLOAD
     Dosage: 500 MG/DAY
     Route: 048
     Dates: start: 20080630, end: 20081018
  2. GLAKAY [Concomitant]
     Dosage: 15 MG/DAY
     Route: 048
  3. RABEPRAZOLE SODIUM [Concomitant]
     Dosage: 10 MG/DAY
     Route: 048
  4. NITRODERM [Concomitant]
     Route: 061
  5. ALDACTONE [Concomitant]
     Dosage: 50 MG/DAY
     Route: 048
  6. CINAL [Concomitant]
     Dosage: 600 MG
     Route: 048
  7. VITANEURIN [Concomitant]
     Dosage: 100 MG
     Route: 048
  8. LUPRAC [Concomitant]
     Dosage: 2 MG
     Route: 048
  9. FLUITRAN [Concomitant]
     Dosage: 2 MG
     Route: 048
  10. LANIRAPID [Concomitant]
     Dosage: 0.05 MG
     Route: 048
  11. NOVORAPID [Concomitant]
     Route: 042
  12. BLOOD TRANSFUSION [Concomitant]
  13. DESFERAL [Concomitant]
     Dosage: 750 MG DAILY

REACTIONS (10)
  - BASOPHIL COUNT ABNORMAL [None]
  - EPILEPSY [None]
  - HAEMATOCRIT DECREASED [None]
  - HAEMOGLOBIN DECREASED [None]
  - MONOCYTE COUNT ABNORMAL [None]
  - PLATELET COUNT DECREASED [None]
  - RED BLOOD CELL COUNT DECREASED [None]
  - SERUM FERRITIN INCREASED [None]
  - SUBDURAL HAEMATOMA [None]
  - SUBDURAL HAEMATOMA EVACUATION [None]
